FAERS Safety Report 18475560 (Version 3)
Quarter: 2020Q4

REPORT INFORMATION
  Report Type: Spontaneous
  Country: DE (occurrence: DE)
  Receive Date: 20201106
  Receipt Date: 20201221
  Transmission Date: 20210114
  Serious: Yes (Other)
  Sender: FDA-Public Use
  Company Number: DE-COLLEGIUM PHARMACEUTICAL, INC.-2020CGM00366

PATIENT
  Age: 63 Year
  Sex: Female

DRUGS (9)
  1. DOXEPIN [Concomitant]
     Active Substance: DOXEPIN
  2. OLMESARTAN [Concomitant]
     Active Substance: OLMESARTAN
  3. SILINOR M [Concomitant]
  4. BISOPROLOL [Concomitant]
     Active Substance: BISOPROLOL
  5. PREGABALIN. [Concomitant]
     Active Substance: PREGABALIN
     Dosage: UNK
     Dates: start: 20200918
  6. NOVALGIN [Concomitant]
  7. HYDROMORPHONE [Concomitant]
     Active Substance: HYDROMORPHONE
  8. NUCYNTA ER [Suspect]
     Active Substance: TAPENTADOL HYDROCHLORIDE
     Indication: POST HERPETIC NEURALGIA
     Dosage: 100 MG, 2X/DAY
     Route: 048
     Dates: end: 202010
  9. PANTOPRAZOL [Concomitant]
     Active Substance: PANTOPRAZOLE SODIUM

REACTIONS (4)
  - Surgery [Unknown]
  - Muscle contractions involuntary [Not Recovered/Not Resolved]
  - Lung disorder [Unknown]
  - Myofascial pain syndrome [Unknown]

NARRATIVE: CASE EVENT DATE: 202001
